FAERS Safety Report 14319366 (Version 2)
Quarter: 2018Q1

REPORT INFORMATION
  Report Type: Spontaneous
  Country: TR (occurrence: TR)
  Receive Date: 20171222
  Receipt Date: 20180212
  Transmission Date: 20180509
  Serious: Yes (Hospitalization)
  Sender: FDA-Public Use
  Company Number: TR-NOVOPROD-577587

PATIENT
  Age: 5 Year
  Sex: Male
  Weight: 17 kg

DRUGS (5)
  1. NORDITROPIN [Suspect]
     Active Substance: SOMATROPIN
     Indication: GROWTH HORMONE DEFICIENCY
     Dosage: 0.5 MG, QD
     Route: 058
     Dates: start: 20171117
  2. NORDITROPIN [Suspect]
     Active Substance: SOMATROPIN
     Dosage: 0.35 MG, QD
     Route: 058
     Dates: start: 20171130, end: 20171209
  3. NORDITROPIN [Suspect]
     Active Substance: SOMATROPIN
     Dosage: UNK
     Route: 058
  4. EUTHYROX [Concomitant]
     Active Substance: LEVOTHYROXINE SODIUM
     Indication: THYROID DISORDER
     Dosage: 1.5 TAB, QD
     Route: 048
     Dates: start: 20130205
  5. GENKORT [Concomitant]
     Indication: UNEVALUABLE THERAPY
     Dosage: QUARTER OF A TABLET DURING EVERY MEAL
     Route: 048
     Dates: start: 20130205

REACTIONS (2)
  - Blood urine present [Recovering/Resolving]
  - Accidental overdose [Unknown]

NARRATIVE: CASE EVENT DATE: 20171117
